FAERS Safety Report 21639687 (Version 2)
Quarter: 2022Q4

REPORT INFORMATION
  Report Type: Spontaneous
  Country: US (occurrence: US)
  Receive Date: 20221124
  Receipt Date: 20221222
  Transmission Date: 20230113
  Serious: No
  Sender: FDA-Public Use
  Company Number: US-BoehringerIngelheim-2022-BI-204720

PATIENT
  Sex: Male

DRUGS (1)
  1. SPIRIVA RESPIMAT [Suspect]
     Active Substance: TIOTROPIUM BROMIDE
     Indication: Product used for unknown indication
     Dosage: FORM OF ADMIN.: INHALATION SPRAY??4.0ML ?2.5MCG ?SAMP 14DAY
     Route: 055
     Dates: start: 202209

REACTIONS (2)
  - Intentional product misuse [Unknown]
  - Product use issue [Unknown]
